FAERS Safety Report 6706435-6 (Version None)
Quarter: 2010Q2

REPORT INFORMATION
  Report Type: 
  Country: None (occurrence: None)
  Receive Date: 20100430
  Receipt Date: 20100430
  Transmission Date: 20101027
  Serious: Yes (Other)
  Sender: FDA-Public Use
  Company Number: None

PATIENT
  Age: 30 Year
  Sex: Female
  Weight: 56.6996 kg

DRUGS (3)
  1. ATIVAN [Suspect]
     Indication: DEPRESSION
     Dosage: 0.5 MG EVERY OTHER DAY PO
     Route: 048
     Dates: start: 20090904, end: 20100110
  2. AMBIEN [Suspect]
     Indication: INSOMNIA
     Dosage: 2.5-5 MG ONCE PER NIGHT PO
     Route: 048
     Dates: start: 20090111, end: 20100427
  3. AMBIEN [Suspect]
     Indication: THERAPY CESSATION
     Dosage: 2.5-5 MG ONCE PER NIGHT PO
     Route: 048
     Dates: start: 20090111, end: 20100427

REACTIONS (10)
  - ANXIETY [None]
  - DECREASED APPETITE [None]
  - DEPRESSION [None]
  - FEELING ABNORMAL [None]
  - INSOMNIA [None]
  - MUSCLE TWITCHING [None]
  - MUSCULAR WEAKNESS [None]
  - SKIN BURNING SENSATION [None]
  - THERAPY CESSATION [None]
  - TREMOR [None]
